FAERS Safety Report 8564773-9 (Version None)
Quarter: 2012Q3

REPORT INFORMATION
  Report Type: 
  Country: None (occurrence: None)
  Receive Date: 20120803
  Receipt Date: 20120726
  Transmission Date: 20120928
  Serious: Yes (Other)
  Sender: FDA-Public Use
  Company Number: GB-SANOFI-AVENTIS-2012SA051341

PATIENT
  Sex: Male

DRUGS (5)
  1. ELOXATIN [Suspect]
     Indication: ADJUVANT THERAPY
     Dosage: ROUTE: INFUSION
  2. ELOXATIN [Suspect]
     Dosage: ROUTE: INFUSION
  3. ELOXATIN [Suspect]
     Indication: COLORECTAL CANCER
     Dosage: ROUTE: INFUSION
  4. ELOXATIN [Suspect]
     Dosage: ROUTE: INFUSION
  5. CAPECITABINE [Concomitant]

REACTIONS (1)
  - EPILEPSY [None]
